FAERS Safety Report 20385390 (Version 1)
Quarter: 2022Q1

REPORT INFORMATION
  Report Type: Spontaneous
  Country: US (occurrence: US)
  Receive Date: 20220127
  Receipt Date: 20220127
  Transmission Date: 20220423
  Serious: No
  Sender: FDA-Public Use
  Company Number: US-ALLERGAN-2122206US

PATIENT
  Age: 40 Year
  Sex: Female
  Weight: 54.422 kg

DRUGS (1)
  1. BOTOX [Suspect]
     Active Substance: ONABOTULINUMTOXINA
     Indication: Headache
     Dosage: 155 UNITS, SINGLE
     Dates: start: 20210602, end: 20210602

REACTIONS (4)
  - Wrong technique in product usage process [Unknown]
  - Product administered at inappropriate site [Unknown]
  - Skin wrinkling [Unknown]
  - Drug ineffective [Unknown]
